FAERS Safety Report 14583695 (Version 1)
Quarter: 2018Q1

REPORT INFORMATION
  Report Type: Spontaneous
  Country: US (occurrence: US)
  Receive Date: 20180227
  Receipt Date: 20180227
  Transmission Date: 20180509
  Serious: Yes (Hospitalization)
  Sender: FDA-Public Use
  Company Number: None

PATIENT
  Age: 49 Year
  Sex: Female

DRUGS (3)
  1. LEVORPHANOL [Suspect]
     Active Substance: LEVORPHANOL
     Indication: LUMBAR RADICULOPATHY
     Route: 048
     Dates: start: 20170703, end: 20180226
  2. CLONAZEPAM 1MG [Concomitant]
     Active Substance: CLONAZEPAM
     Dates: start: 20170728
  3. VYVANSE 75MG [Concomitant]
     Dates: start: 20170728

REACTIONS (4)
  - Therapy change [None]
  - Weight decreased [None]
  - Nausea [None]
  - Hyperhidrosis [None]

NARRATIVE: CASE EVENT DATE: 20180226
